FAERS Safety Report 24747080 (Version 1)
Quarter: 2024Q4

REPORT INFORMATION
  Report Type: Spontaneous
  Country: CN (occurrence: CN)
  Receive Date: 20241218
  Receipt Date: 20241218
  Transmission Date: 20250115
  Serious: Yes (Other)
  Sender: AUROBINDO
  Company Number: CN-AUROBINDO-AUR-APL-2024-060495

PATIENT
  Age: 49 Year
  Sex: Female

DRUGS (4)
  1. MIRTAZAPINE [Suspect]
     Active Substance: MIRTAZAPINE
     Indication: Depression
     Dosage: 7.5 MILLIGRAM, ONCE A DAY
     Route: 048
     Dates: start: 20241117, end: 20241125
  2. ARIPIPRAZOLE [Suspect]
     Active Substance: ARIPIPRAZOLE
     Indication: Depression
     Dosage: 5 MILLIGRAM, ONCE A DAY (MAH: ZHEJIANG OTSUKA PHARMACEUTICAL CO., LTD
     Route: 048
     Dates: start: 20241116, end: 20241125
  3. PAROXETINE HYDROCHLORIDE [Suspect]
     Active Substance: PAROXETINE HYDROCHLORIDE
     Indication: Depression
     Dosage: 30 MILLIGRAM, ONCE A DAY (MAH?ZHEJIANG HUAHAI PHARMACEUTICAL CO., LTD)
     Route: 048
     Dates: start: 20241116, end: 20241203
  4. TANDOSPIRONE CITRATE [Suspect]
     Active Substance: TANDOSPIRONE CITRATE
     Indication: Depression
     Dosage: 10 MILLIGRAM, 3 TIMES A DAY (MAH?SUMITOMO DAINIPPON PHARMA CO., LTD. SUZUKA PLANT)
     Route: 048
     Dates: start: 20241116, end: 20241203

REACTIONS (1)
  - Alanine aminotransferase increased [Unknown]

NARRATIVE: CASE EVENT DATE: 20241125
